FAERS Safety Report 25544562 (Version 4)
Quarter: 2025Q3

REPORT INFORMATION
  Report Type: Spontaneous
  Country: EU (occurrence: EU)
  Receive Date: 20250711
  Receipt Date: 20250821
  Transmission Date: 20251020
  Serious: Yes (Death, Life-Threatening, Hospitalization)
  Sender: CATALYST PHARMA
  Company Number: EU-SANTHERA-SAN-002184

PATIENT
  Age: 6 Year
  Sex: Male

DRUGS (4)
  1. AGAMREE [Suspect]
     Active Substance: VAMOROLONE
     Indication: Duchenne muscular dystrophy
     Dosage: 108 MG
     Route: 048
     Dates: start: 20240807, end: 20250623
  2. GIVINOSTAT [Suspect]
     Active Substance: GIVINOSTAT
     Indication: Duchenne muscular dystrophy
     Dosage: 22.1 MG
     Route: 048
     Dates: start: 20250325, end: 20250410
  3. GIVINOSTAT [Suspect]
     Active Substance: GIVINOSTAT
     Dosage: 22.1 MG
     Route: 048
     Dates: start: 20250427, end: 20250623
  4. VITAMIN D NOS [Concomitant]
     Active Substance: CHOLECALCIFEROL\ERGOCALCIFEROL
     Indication: Product used for unknown indication
     Dosage: 1000 INTERNATIONAL UNITS ONCE DAILY
     Route: 065

REACTIONS (15)
  - Cardiac arrest [Fatal]
  - Thrombocytopenia [Unknown]
  - Pyrexia [Recovered/Resolved]
  - Platelet count decreased [Unknown]
  - Abdominal pain upper [Recovered/Resolved]
  - Panic attack [Unknown]
  - Rash [Recovered/Resolved]
  - Erythema [Recovered/Resolved]
  - Tympanic membrane hyperaemia [Recovered/Resolved]
  - Lymphadenopathy [Recovered/Resolved]
  - Tachycardia [Recovered/Resolved]
  - Body temperature increased [Unknown]
  - Bradycardia [Unknown]
  - Pallor [Unknown]
  - Gastroenteritis [Unknown]

NARRATIVE: CASE EVENT DATE: 20250512
